FAERS Safety Report 15655352 (Version 3)
Quarter: 2020Q4

REPORT INFORMATION
  Report Type: Spontaneous
  Country: US (occurrence: US)
  Receive Date: 20181126
  Receipt Date: 20201202
  Transmission Date: 20210113
  Serious: No
  Sender: FDA-Public Use
  Company Number: US-ASTRAZENECA-2018SF42411

PATIENT
  Sex: Female

DRUGS (1)
  1. FARXIGA [Suspect]
     Active Substance: DAPAGLIFLOZIN PROPANEDIOL
     Route: 048

REACTIONS (5)
  - Pyrexia [Unknown]
  - Feeling abnormal [Unknown]
  - Kidney infection [Not Recovered/Not Resolved]
  - Blood urine present [Recovering/Resolving]
  - Cystitis [Not Recovered/Not Resolved]
